FAERS Safety Report 16686451 (Version 1)
Quarter: 2019Q3

REPORT INFORMATION
  Report Type: Spontaneous
  Country: GB (occurrence: GB)
  Receive Date: 20190809
  Receipt Date: 20190809
  Transmission Date: 20191004
  Serious: Yes (Hospitalization)
  Sender: FDA-Public Use
  Company Number: GB-TEVA-2019-GB-1089638

PATIENT
  Age: 47 Year
  Sex: Male

DRUGS (12)
  1. RIBAVIRIN. [Suspect]
     Active Substance: RIBAVIRIN
     Indication: HEPATITIS C
     Dosage: 600MG BD REDUCED ON 30TH MAY TO 400MG BD
     Route: 048
     Dates: start: 20190530, end: 20190606
  2. CARVEDILOL. [Concomitant]
     Active Substance: CARVEDILOL
  3. RIBAVIRIN. [Suspect]
     Active Substance: RIBAVIRIN
     Route: 048
     Dates: start: 20190411, end: 20190529
  4. TRIMETHOPRIM. [Concomitant]
     Active Substance: TRIMETHOPRIM
  5. OMEPRAZOLE. [Concomitant]
     Active Substance: OMEPRAZOLE
  6. RIFAXIMIN. [Concomitant]
     Active Substance: RIFAXIMIN
  7. METHADONE [Concomitant]
     Active Substance: METHADONE HYDROCHLORIDE
  8. DOXYCYCLINE. [Concomitant]
     Active Substance: DOXYCYCLINE
  9. SALBUTAMOL [Concomitant]
     Active Substance: ALBUTEROL
  10. AMOXICILLIN. [Concomitant]
     Active Substance: AMOXICILLIN
  11. EPCLUSA [Concomitant]
     Active Substance: SOFOSBUVIR\VELPATASVIR
  12. SPIRONOLACTONE. [Concomitant]
     Active Substance: SPIRONOLACTONE

REACTIONS (5)
  - Frequent bowel movements [Unknown]
  - Enterocolitis haemorrhagic [Not Recovered/Not Resolved]
  - Rectal haemorrhage [Unknown]
  - Diarrhoea [Unknown]
  - Abdominal pain [Unknown]
